FAERS Safety Report 7149846-X (Version None)
Quarter: 2010Q4

REPORT INFORMATION
  Report Type: 
  Country: None (occurrence: None)
  Receive Date: 20101210
  Receipt Date: 20101201
  Transmission Date: 20110411
  Serious: No
  Sender: FDA-Public Use
  Company Number: US-BIOGENIDEC-2010BI042485

PATIENT
  Sex: Female

DRUGS (2)
  1. TYSABRI [Suspect]
     Indication: MULTIPLE SCLEROSIS
     Route: 042
     Dates: start: 20100713
  2. METHOTREXATE [Concomitant]
     Indication: ARTHRITIS
     Dates: start: 19930101, end: 20100801

REACTIONS (6)
  - ARTHRALGIA [None]
  - BALANCE DISORDER [None]
  - CONTUSION [None]
  - DIZZINESS [None]
  - FALL [None]
  - PARAESTHESIA [None]
